FAERS Safety Report 13344675 (Version 1)
Quarter: 2017Q1

REPORT INFORMATION
  Report Type: Spontaneous
  Country: IT (occurrence: IT)
  Receive Date: 20170317
  Receipt Date: 20170317
  Transmission Date: 20170428
  Serious: Yes (Other)
  Sender: FDA-Public Use
  Company Number: IT-ACCORD-046639

PATIENT
  Age: 59 Year
  Sex: Female

DRUGS (13)
  1. EUTIROX MERCK [Concomitant]
     Indication: PRODUCT USED FOR UNKNOWN INDICATION
  2. TACHIPIRINA AZIENDE [Concomitant]
     Indication: PRODUCT USED FOR UNKNOWN INDICATION
  3. LEVOFOLINIC ACID [Concomitant]
     Active Substance: LEVOLEUCOVORIN
     Indication: PRODUCT USED FOR UNKNOWN INDICATION
     Dosage: FOLFOX/AVASTIN CYCLE 2 AND 4
     Route: 042
     Dates: start: 20160908, end: 20161117
  4. TARGIN MUNDIPHARMA [Concomitant]
     Indication: PRODUCT USED FOR UNKNOWN INDICATION
  5. FLUOROURACIL. [Suspect]
     Active Substance: FLUOROURACIL
     Indication: ADENOCARCINOMA OF COLON
     Dosage: ALSO RECEIVED FLUOROURACIL AT THE DOSE OF 4320 AND 3200 MG I.V. CYCLICAL ON SAME DATE
     Route: 040
     Dates: start: 20160908
  6. AVASTIN [Concomitant]
     Active Substance: BEVACIZUMAB
     Dates: start: 20160908, end: 20170202
  7. OXALIPLATIN ACCORD [Suspect]
     Active Substance: OXALIPLATIN
     Indication: ADENOCARCINOMA OF COLON
     Dosage: 100 MG, ALSO RECEIVED AT THE DOSE OF 115 MG CYCLICAL ON SAME DATE.??FOLFOX/AVASTIN CYCLE 2 AND 4
     Route: 042
     Dates: start: 20160908
  8. BEVACIZUMAB [Suspect]
     Active Substance: BEVACIZUMAB
     Indication: ADENOCARCINOMA OF COLON
     Dosage: ALSO RECEIVED AT THE DOSE OF 365 MG CYCLICAL ON SAME DATE
     Route: 042
     Dates: start: 20160908
  9. LOBIVON PROGRAMMI SANITARI [Concomitant]
     Indication: PRODUCT USED FOR UNKNOWN INDICATION
  10. COMBISARTAN MENARINI [Concomitant]
     Indication: PRODUCT USED FOR UNKNOWN INDICATION
  11. ESKIM SIGMA-TAU [Concomitant]
     Indication: PRODUCT USED FOR UNKNOWN INDICATION
  12. PROVISACOR ASTRAZENECA [Concomitant]
     Indication: PRODUCT USED FOR UNKNOWN INDICATION
  13. SOLDESAM LABORATORIO FARMACOLOGICO MILANESE [Concomitant]
     Indication: PRODUCT USED FOR UNKNOWN INDICATION

REACTIONS (6)
  - Thrombocytopenia [Not Recovered/Not Resolved]
  - Hypertransaminasaemia [Recovering/Resolving]
  - Vomiting [Recovering/Resolving]
  - Paraesthesia [Not Recovered/Not Resolved]
  - Diarrhoea [Recovering/Resolving]
  - Infusion related reaction [Recovering/Resolving]

NARRATIVE: CASE EVENT DATE: 20160909
